FAERS Safety Report 25846393 (Version 5)
Quarter: 2025Q4

REPORT INFORMATION
  Report Type: Spontaneous
  Country: JP (occurrence: JP)
  Receive Date: 20250925
  Receipt Date: 20251112
  Transmission Date: 20260118
  Serious: Yes (Other)
  Sender: ROCHE
  Company Number: JP-CHUGAI-2025030171

PATIENT
  Age: 4 Decade
  Sex: Female

DRUGS (3)
  1. LUNSUMIO [Suspect]
     Active Substance: MOSUNETUZUMAB-AXGB
     Indication: Follicular lymphoma
     Dosage: 1 MILLIGRAM
     Route: 042
     Dates: start: 20250910, end: 20250910
  2. LUNSUMIO [Suspect]
     Active Substance: MOSUNETUZUMAB-AXGB
     Dosage: 2 MILLIGRAM
     Route: 042
     Dates: start: 20250917, end: 20250917
  3. LEVETIRACETAM [Concomitant]
     Active Substance: LEVETIRACETAM

REACTIONS (1)
  - Cytokine release syndrome [Recovered/Resolved]

NARRATIVE: CASE EVENT DATE: 20250910
